FAERS Safety Report 19562216 (Version 11)
Quarter: 2023Q2

REPORT INFORMATION
  Report Type: Report from Study
  Country: CN (occurrence: CN)
  Receive Date: 20210715
  Receipt Date: 20230518
  Transmission Date: 20230721
  Serious: Yes (Other)
  Sender: FDA-Public Use
  Company Number: CN-TAKEDA-2021TUS042843

PATIENT
  Age: 50 Year
  Sex: Male
  Weight: 78 kg

DRUGS (74)
  1. IXAZOMIB [Suspect]
     Active Substance: IXAZOMIB
     Indication: Plasma cell myeloma
     Dosage: 4 MILLIGRAM
     Route: 048
     Dates: start: 20210226
  2. DEXAMETHASONE [Suspect]
     Active Substance: DEXAMETHASONE
     Indication: Plasma cell myeloma
     Dosage: 20 MILLIGRAM
     Route: 048
     Dates: start: 20210226
  3. DOXORUBICIN [Suspect]
     Active Substance: DOXORUBICIN
     Indication: Plasma cell myeloma
     Dosage: 40 MILLIGRAM
     Route: 042
     Dates: start: 20210226, end: 20210226
  4. ALFACALCIDOL [Concomitant]
     Active Substance: ALFACALCIDOL
     Indication: Prophylaxis
     Dosage: 0.25 MICROGRAM, QD
     Route: 048
     Dates: start: 20210118
  5. CALTRATE WITH VITAMIN D [Concomitant]
     Active Substance: CALCIUM CARBONATE\CHOLECALCIFEROL
     Indication: Prophylaxis
     Dosage: 0.6 GRAM, QD
     Route: 048
     Dates: start: 20210118
  6. CALTRATE WITH VITAMIN D [Concomitant]
     Active Substance: CALCIUM CARBONATE\CHOLECALCIFEROL
     Indication: Mineral supplementation
  7. FAMCICLOVIR [Concomitant]
     Active Substance: FAMCICLOVIR
     Indication: Prophylaxis
     Dosage: 0.25 GRAM, TID
     Route: 048
     Dates: start: 20201216
  8. FAMCICLOVIR [Concomitant]
     Active Substance: FAMCICLOVIR
     Indication: Antiviral treatment
  9. FLUCONAZOLE [Concomitant]
     Active Substance: FLUCONAZOLE
     Indication: Prophylaxis
     Dosage: 150 MILLIGRAM, QD
     Route: 048
     Dates: start: 20210226
  10. FLUCONAZOLE [Concomitant]
     Active Substance: FLUCONAZOLE
     Indication: Infection prophylaxis
  11. INSULIN GLULISINE [Concomitant]
     Active Substance: INSULIN GLULISINE
     Indication: Type 2 diabetes mellitus
     Dosage: UNK
     Route: 042
     Dates: start: 20210226
  12. POTASSIUM CHLORIDE [Concomitant]
     Active Substance: POTASSIUM CHLORIDE
     Indication: Prophylaxis
     Dosage: 1 GRAM, TID
     Route: 048
     Dates: start: 20210125
  13. POTASSIUM CHLORIDE [Concomitant]
     Active Substance: POTASSIUM CHLORIDE
     Indication: Mineral supplementation
     Dosage: 60 MILLILITER
     Route: 048
     Dates: start: 20210408
  14. POTASSIUM CHLORIDE [Concomitant]
     Active Substance: POTASSIUM CHLORIDE
     Indication: Hypokalaemia
  15. NEUROTROPIN [Concomitant]
     Active Substance: NEUROTROPIN
     Indication: Neuropathy peripheral
     Dosage: 9 MILLILITER, QD
     Route: 042
     Dates: start: 20210222, end: 20210227
  16. NEUROTROPIN [Concomitant]
     Active Substance: NEUROTROPIN
     Dosage: 9 MILLILITER, QD
     Route: 042
     Dates: start: 20210326, end: 20210426
  17. ATORVASTATIN CALCIUM [Concomitant]
     Active Substance: ATORVASTATIN CALCIUM
     Indication: Prophylaxis
     Dosage: 20 MILLIGRAM
     Route: 048
     Dates: start: 20210409
  18. ATORVASTATIN CALCIUM [Concomitant]
     Active Substance: ATORVASTATIN CALCIUM
     Indication: Mineral supplementation
  19. METHYLCOBALAMIN [Concomitant]
     Active Substance: METHYLCOBALAMIN
     Indication: Neuropathy peripheral
     Dosage: 3 MILLIGRAM, QD
     Route: 042
     Dates: start: 20210222, end: 20210227
  20. METHYLCOBALAMIN [Concomitant]
     Active Substance: METHYLCOBALAMIN
     Dosage: 3 MILLIGRAM, QD
     Route: 042
     Dates: start: 20210326, end: 20210426
  21. GRANULOCYTE COLONY-STIMULATING FACTOR NOS [Concomitant]
     Active Substance: GRANULOCYTE COLONY-STIMULATING FACTOR NOS
     Indication: Prophylaxis
     Dosage: 1.5 MILLILITER, BID
     Route: 058
     Dates: start: 20210403, end: 20210407
  22. GRANULOCYTE COLONY-STIMULATING FACTOR NOS [Concomitant]
     Active Substance: GRANULOCYTE COLONY-STIMULATING FACTOR NOS
     Dosage: 1.2 MILLILITER, QD
     Route: 058
     Dates: start: 20210426, end: 20210505
  23. GRANULOCYTE COLONY-STIMULATING FACTOR NOS [Concomitant]
     Active Substance: GRANULOCYTE COLONY-STIMULATING FACTOR NOS
     Dosage: 0.6 MILLILITER, QD
     Route: 058
     Dates: start: 20210505, end: 20210506
  24. GRANULOCYTE COLONY-STIMULATING FACTOR NOS [Concomitant]
     Active Substance: GRANULOCYTE COLONY-STIMULATING FACTOR NOS
     Dosage: 0.3 MILLILITER, QD
     Route: 058
     Dates: start: 20210510, end: 20210512
  25. GRANULOCYTE COLONY-STIMULATING FACTOR NOS [Concomitant]
     Active Substance: GRANULOCYTE COLONY-STIMULATING FACTOR NOS
     Dosage: 1.8 MILLILITER
     Route: 058
     Dates: start: 20210406, end: 20210407
  26. LEVOCARNITINE [Concomitant]
     Active Substance: LEVOCARNITINE
     Indication: Prophylaxis
     Dosage: 5 MILLILITER, QD
     Route: 042
     Dates: start: 20210405, end: 20210423
  27. CEFOPERAZONE SODIUM\SULBACTAM SODIUM [Concomitant]
     Active Substance: CEFOPERAZONE SODIUM\SULBACTAM SODIUM
     Indication: Prophylaxis
     Dosage: 3 GRAM
     Route: 042
     Dates: start: 20210406, end: 20210415
  28. CEFOPERAZONE SODIUM\SULBACTAM SODIUM [Concomitant]
     Active Substance: CEFOPERAZONE SODIUM\SULBACTAM SODIUM
     Indication: Prophylaxis
  29. ZOLPIDEM [Concomitant]
     Active Substance: ZOLPIDEM TARTRATE
     Indication: Prophylaxis
     Dosage: 10 MILLIGRAM
     Route: 058
     Dates: start: 20210326, end: 20210326
  30. ZOLPIDEM [Concomitant]
     Active Substance: ZOLPIDEM TARTRATE
     Dosage: UNK
     Route: 058
     Dates: start: 20210407, end: 20210407
  31. CALCIUM CARBONATE\ERGOCALCIFEROL\RETINOL [Concomitant]
     Active Substance: CALCIUM CARBONATE\ERGOCALCIFEROL\RETINOL
     Indication: Mineral supplementation
     Dosage: 0.25 MICROGRAM, QD
     Route: 048
     Dates: start: 20210118
  32. CREATINE [Concomitant]
     Active Substance: CREATINE
     Indication: Prophylaxis
     Dosage: 1 GRAM, QD
     Route: 042
     Dates: start: 20210226, end: 20210227
  33. SODIUM BICARBONATE [Concomitant]
     Active Substance: SODIUM BICARBONATE
     Indication: Gastric pH increased
     Dosage: 50 MILLILITER, QD
     Route: 042
     Dates: start: 20210226, end: 20210227
  34. MAGNESIUM ISOGLYCYRRHIZINATE [Concomitant]
     Active Substance: MAGNESIUM ISOGLYCYRRHIZINATE
     Indication: Prophylaxis
     Dosage: 200 MILLIGRAM
     Route: 042
     Dates: start: 20210226, end: 20210226
  35. OMEPRAZOLE SODIUM [Concomitant]
     Active Substance: OMEPRAZOLE SODIUM
     Indication: Prophylaxis
     Dosage: 40 MILLIGRAM
     Route: 042
     Dates: start: 20210226, end: 20210227
  36. TROPISETRON HYDROCHLORIDE [Concomitant]
     Active Substance: TROPISETRON HYDROCHLORIDE
     Indication: Prophylaxis of nausea and vomiting
     Dosage: 100 MILLILITER, QD
     Route: 042
     Dates: start: 20210416, end: 20210419
  37. TROPISETRON HYDROCHLORIDE [Concomitant]
     Active Substance: TROPISETRON HYDROCHLORIDE
     Dosage: 100 MILLIGRAM, QD
     Route: 042
     Dates: start: 20210420, end: 20210425
  38. TROPISETRON HYDROCHLORIDE [Concomitant]
     Active Substance: TROPISETRON HYDROCHLORIDE
     Dosage: 2 MILLILITER, QD
     Route: 042
     Dates: start: 20210505, end: 20210506
  39. URSODIOL [Concomitant]
     Active Substance: URSODIOL
     Indication: Prophylaxis
     Dosage: 250 MILLIGRAM, TID
     Route: 048
     Dates: start: 20210415, end: 20210423
  40. GLUTAMINE [Concomitant]
     Active Substance: GLUTAMINE
     Indication: Supplementation therapy
     Dosage: 10 MILLIGRAM, TID
     Route: 048
     Dates: start: 20210415, end: 20210507
  41. ALLOPURINOL [Concomitant]
     Active Substance: ALLOPURINOL
     Indication: Gastric pH increased
     Dosage: 0.1 GRAM, TID
     Route: 048
     Dates: start: 20210415, end: 20210423
  42. ENOXAPARIN SODIUM [Concomitant]
     Active Substance: ENOXAPARIN SODIUM
     Indication: Thrombosis prophylaxis
     Dosage: 0.2 MILLILITER, QD
     Route: 058
     Dates: start: 20210415, end: 20210425
  43. VORICONAZOLE [Concomitant]
     Active Substance: VORICONAZOLE
     Indication: Infection prophylaxis
     Dosage: 200 MILLIGRAM
     Route: 048
     Dates: start: 20210415, end: 20210425
  44. GLUTATHIONE [Concomitant]
     Active Substance: GLUTATHIONE
     Indication: Prophylaxis
     Dosage: 2.4 GRAM, QD
     Route: 042
     Dates: start: 20210416, end: 20210423
  45. PENCICLOVIR [Concomitant]
     Active Substance: PENCICLOVIR
     Indication: Infection prophylaxis
     Dosage: 0.25 GRAM
     Route: 042
     Dates: start: 20210419, end: 20210508
  46. AMINO ACIDS, SOURCE UNSPECIFIED [Concomitant]
     Active Substance: AMINO ACIDS, SOURCE UNSPECIFIED
     Indication: Supplementation therapy
     Dosage: 250 MILLILITER, QD
     Route: 042
     Dates: start: 20210419, end: 20210507
  47. CASPOFUNGIN [Concomitant]
     Active Substance: CASPOFUNGIN
     Indication: Infection prophylaxis
     Dosage: 50 MILLIGRAM, QD
     Route: 042
     Dates: start: 20210419, end: 20210507
  48. PIPERACILLIN AND TAZOBACTAM [Concomitant]
     Active Substance: PIPERACILLIN SODIUM\TAZOBACTAM SODIUM
     Indication: Infection prophylaxis
     Dosage: 4.5 GRAM
     Route: 042
     Dates: start: 20210419, end: 20210429
  49. TEICOPLANIN [Concomitant]
     Active Substance: TEICOPLANIN
     Indication: Infection prophylaxis
     Dosage: 0.6 GRAM
     Route: 042
     Dates: start: 20210421, end: 20210430
  50. Compound Eosinophil Lactobacillus [Concomitant]
     Indication: Prophylaxis
     Dosage: 1 GRAM, TID
     Route: 042
     Dates: start: 20210423, end: 20210531
  51. CALCIUM GLUCONATE [Concomitant]
     Active Substance: CALCIUM GLUCONATE
     Indication: Hypocalcaemia
     Dosage: 10 MILLILITER, QD
     Route: 042
     Dates: start: 20210423, end: 20210426
  52. MINOCYCLINE HYDROCHLORIDE [Concomitant]
     Active Substance: MINOCYCLINE HYDROCHLORIDE
     Indication: Infection prophylaxis
     Dosage: 50 MILLIGRAM, BID
     Route: 048
     Dates: start: 20210426, end: 20210508
  53. MEROPENEM [Concomitant]
     Active Substance: MEROPENEM
     Indication: Infection prophylaxis
     Dosage: 1 GRAM
     Route: 042
     Dates: start: 20210429, end: 20210507
  54. LINEZOLID [Concomitant]
     Active Substance: LINEZOLID
     Indication: Infection prophylaxis
     Dosage: 600 MILLIGRAM
     Route: 042
     Dates: start: 20210430, end: 20210501
  55. OSELTAMIVIR [Concomitant]
     Active Substance: OSELTAMIVIR
     Indication: Antiviral prophylaxis
     Dosage: 75 MILLIGRAM, BID
     Route: 048
     Dates: start: 20210430, end: 20210506
  56. TIGECYCLINE [Concomitant]
     Active Substance: TIGECYCLINE
     Indication: Infection prophylaxis
     Dosage: 50 MILLIGRAM
     Route: 042
     Dates: start: 20210501, end: 20210506
  57. VITAMIN B6 [Concomitant]
     Active Substance: PYRIDOXINE HYDROCHLORIDE
     Indication: Prophylaxis of nausea and vomiting
     Dosage: 100 MILLILITER
     Route: 042
     Dates: start: 20210505, end: 20210506
  58. VANCOMYCIN [Concomitant]
     Active Substance: VANCOMYCIN
     Indication: Infection prophylaxis
     Dosage: 500 MILLIGRAM
     Route: 042
     Dates: start: 20210508, end: 20210519
  59. MOXIFLOXACIN HYDROCHLORIDE [Concomitant]
     Active Substance: MOXIFLOXACIN HYDROCHLORIDE
     Indication: Infection prophylaxis
     Dosage: 250 MILLILITER, QD
     Route: 042
     Dates: start: 20210523, end: 20210530
  60. POSACONAZOLE [Concomitant]
     Active Substance: POSACONAZOLE
     Indication: Antifungal prophylaxis
     Dosage: 5 MILLILITER, TID
     Route: 048
     Dates: start: 20210519, end: 20210528
  61. POSACONAZOLE [Concomitant]
     Active Substance: POSACONAZOLE
     Dosage: 105 MILLILITER
     Route: 048
     Dates: start: 20210618
  62. PLERIXAFOR [Concomitant]
     Active Substance: PLERIXAFOR
     Indication: Immunomodulatory therapy
     Dosage: 24 MILLIGRAM
     Route: 058
     Dates: start: 20210406, end: 20210406
  63. TORSEMIDE [Concomitant]
     Active Substance: TORSEMIDE
     Indication: Polyuria
     Dosage: 20 MILLIGRAM
     Route: 042
     Dates: start: 20210416, end: 20210417
  64. DEXAMETHASONE SODIUM PHOSPHATE [Concomitant]
     Active Substance: DEXAMETHASONE SODIUM PHOSPHATE
     Indication: Plasma cell myeloma
     Dosage: 20 MILLIGRAM
     Route: 042
     Dates: start: 20210416, end: 20210417
  65. DEXAMETHASONE SODIUM PHOSPHATE [Concomitant]
     Active Substance: DEXAMETHASONE SODIUM PHOSPHATE
     Dosage: 5 MILLIGRAM
     Route: 042
     Dates: start: 20210518, end: 20210518
  66. METOPROLOL SUCCINATE [Concomitant]
     Active Substance: METOPROLOL SUCCINATE
     Indication: Hypertension
     Dosage: 47.5 MILLIGRAM
     Route: 048
     Dates: start: 20210416, end: 20210416
  67. FUROSEMIDE [Concomitant]
     Active Substance: FUROSEMIDE
     Indication: Polyuria
     Dosage: 20 MILLIGRAM
     Route: 042
     Dates: start: 20210417, end: 20210418
  68. ACETAMINOPHEN [Concomitant]
     Active Substance: ACETAMINOPHEN
     Indication: Pyrexia
     Dosage: UNK
     Route: 048
     Dates: start: 20210517, end: 20210517
  69. HYDROCORTISONE SODIUM SUCCINATE [Concomitant]
     Active Substance: HYDROCORTISONE SODIUM SUCCINATE
     Indication: Transplant
     Dosage: 100 MILLIGRAM
     Route: 042
     Dates: start: 20210517, end: 20210517
  70. VORICONAZOLE [Concomitant]
     Active Substance: VORICONAZOLE
     Indication: Infection prophylaxis
     Dosage: 0.2 GRAM
     Route: 042
     Dates: start: 20220621, end: 20220625
  71. VORICONAZOLE [Concomitant]
     Active Substance: VORICONAZOLE
     Dosage: 0.4 GRAM
     Route: 042
     Dates: start: 20220621, end: 20220621
  72. CANSIDAS [Concomitant]
     Indication: Infection prophylaxis
     Dosage: 50 MILLIGRAM, QD
     Route: 042
     Dates: start: 20220621, end: 20220623
  73. PHOSPHOLIPID [Concomitant]
     Active Substance: PHOSPHOLIPID
     Indication: Prophylaxis
     Dosage: 228 MILLIGRAM, TID
     Route: 048
     Dates: start: 20210618
  74. RABEPRAZOLE SODIUM [Concomitant]
     Active Substance: RABEPRAZOLE SODIUM
     Indication: Prophylaxis
     Dosage: 10 MILLIGRAM
     Route: 048
     Dates: start: 20210618

REACTIONS (11)
  - Hypokalaemia [Recovered/Resolved]
  - Gastrointestinal disorder [Recovered/Resolved]
  - Infection [Recovered/Resolved]
  - Hypocalcaemia [Recovered/Resolved]
  - Sinus tachycardia [Recovered/Resolved]
  - Cough [Recovered/Resolved]
  - Pyrexia [Recovered/Resolved]
  - Diarrhoea [Recovered/Resolved]
  - Constipation [Recovered/Resolved]
  - Rash [Recovered/Resolved]
  - Off label use [Unknown]

NARRATIVE: CASE EVENT DATE: 20210226
